FAERS Safety Report 5870832-1 (Version None)
Quarter: 2008Q3

REPORT INFORMATION
  Report Type: 
  Country: None (occurrence: None)
  Receive Date: 20080904
  Receipt Date: 20080822
  Transmission Date: 20090109
  Serious: Yes (Hospitalization)
  Sender: FDA-Public Use
  Company Number: US-ELI_LILLY_AND_COMPANY-US_030292429

PATIENT
  Age: 75 Year
  Sex: Male

DRUGS (13)
  1. OLANZAPINE [Suspect]
     Indication: PSYCHOTIC DISORDER
     Dosage: 10 MG, DAILY (1/D)
     Route: 048
  2. KEFZOL [Suspect]
     Indication: CELLULITIS
     Dosage: UNK, UNKNOWN
  3. PAROXETINE HCL [Concomitant]
     Dosage: 20 MG, DAILY (1/D)
  4. LAMOTRIGINE [Concomitant]
     Dosage: 150 MG, DAILY (1/D)
  5. LORAZEPAM [Concomitant]
     Dosage: 1 MG, DAILY (1/D)
  6. NIFEDIPINE [Concomitant]
     Dosage: 90 MG, DAILY (1/D)
  7. LISINOPRIL [Concomitant]
     Dosage: 20 MG, DAILY (1/D)
  8. FUROSEMIDE [Concomitant]
     Dosage: 80 MG, DAILY (1/D)
  9. FLUVASTATIN [Concomitant]
     Dosage: 40 MG, DAILY (1/D)
  10. TAMSULOSIN HCL [Concomitant]
     Dosage: 0.4 MG, DAILY (1/D)
  11. SORBITOL [Concomitant]
     Dosage: 30 ML, DAILY (1/D)
  12. ASPIRIN [Concomitant]
     Dosage: 81 MG, DAILY (1/D)
  13. DOCUSATE SODIUM [Concomitant]
     Dosage: 100 MG, DAILY (1/D)

REACTIONS (9)
  - BLOOD UREA INCREASED [None]
  - CELLULITIS [None]
  - LACERATION [None]
  - MAJOR DEPRESSION [None]
  - NEUROLEPTIC MALIGNANT SYNDROME [None]
  - NODULE ON EXTREMITY [None]
  - SUICIDE ATTEMPT [None]
  - URINE OUTPUT DECREASED [None]
  - WHITE BLOOD CELLS URINE POSITIVE [None]
